FAERS Safety Report 7321639-X (Version None)
Quarter: 2011Q1

REPORT INFORMATION
  Report Type: 
  Country: None (occurrence: None)
  Receive Date: 20110228
  Receipt Date: 20101109
  Transmission Date: 20110831
  Serious: No
  Sender: FDA-Public Use
  Company Number: A0886607A

PATIENT
  Sex: Female

DRUGS (2)
  1. VALTREX [Suspect]
     Route: 065
  2. VALACYCLOVIR [Suspect]
     Indication: HERPES OPHTHALMIC
     Route: 065

REACTIONS (6)
  - HERPES SIMPLEX [None]
  - HERPES VIRUS INFECTION [None]
  - IRITIS [None]
  - DRUG INEFFECTIVE [None]
  - THERAPEUTIC RESPONSE UNEXPECTED WITH DRUG SUBSTITUTION [None]
  - KERATITIS HERPETIC [None]
